FAERS Safety Report 4826498-2 (Version None)
Quarter: 2005Q4

REPORT INFORMATION
  Report Type: 
  Country: None (occurrence: None)
  Receive Date: 20051111
  Receipt Date: 20040308
  Transmission Date: 20060501
  Serious: Yes (Hospitalization)
  Sender: FDA-Public Use
  Company Number: US-MERCK-0403USA00704

PATIENT
  Age: 53 Year
  Sex: Male
  Weight: 80 kg

DRUGS (5)
  1. VIOXX [Suspect]
     Indication: HAEMORRHOIDS
     Route: 048
     Dates: start: 20030227, end: 20030301
  2. [THERAPY UNSPECIFIED] [Concomitant]
     Route: 065
  3. PAXIL [Concomitant]
     Route: 065
  4. IBUPROFEN [Concomitant]
     Route: 065
  5. ZOLOFT [Concomitant]
     Route: 065

REACTIONS (41)
  - ACUTE MYOCARDIAL INFARCTION [None]
  - ANAEMIA [None]
  - ANXIETY [None]
  - ARTERIOSCLEROSIS [None]
  - ARTERIOSCLEROSIS CORONARY ARTERY [None]
  - ASTHENIA [None]
  - ATTENTION DEFICIT/HYPERACTIVITY DISORDER [None]
  - BLOOD PRESSURE INCREASED [None]
  - CHEST PAIN [None]
  - CHRONIC FATIGUE SYNDROME [None]
  - CORONARY ARTERY DISEASE [None]
  - CORONARY ARTERY STENOSIS [None]
  - COUGH [None]
  - CRYING [None]
  - DEPRESSION [None]
  - DIZZINESS [None]
  - DYSPEPSIA [None]
  - EYE SWELLING [None]
  - FATIGUE [None]
  - GASTROOESOPHAGEAL REFLUX DISEASE [None]
  - GENERALISED ANXIETY DISORDER [None]
  - HAEMORRHOID OPERATION [None]
  - HAEMORRHOIDAL HAEMORRHAGE [None]
  - HEPATIC CYST [None]
  - HYPERCHOLESTEROLAEMIA [None]
  - HYPERTENSION [None]
  - INSOMNIA [None]
  - JOINT SWELLING [None]
  - LOWER GASTROINTESTINAL HAEMORRHAGE [None]
  - MALAISE [None]
  - MICROCYTIC ANAEMIA [None]
  - MOTION SICKNESS [None]
  - MYOCARDIAL ISCHAEMIA [None]
  - NAUSEA [None]
  - OEDEMA PERIPHERAL [None]
  - PANIC ATTACK [None]
  - PANIC DISORDER [None]
  - PHLEBITIS SUPERFICIAL [None]
  - PROSTATITIS [None]
  - RENAL COLIC [None]
  - URINARY TRACT INFECTION [None]
